FAERS Safety Report 8817141 (Version 1)
Quarter: 2012Q4

REPORT INFORMATION
  Report Type: Spontaneous
  Country: US (occurrence: None)
  Receive Date: 20121003
  Receipt Date: 20121003
  Transmission Date: 20130627
  Serious: Yes (Other)
  Sender: FDA-Public Use
  Company Number: None

PATIENT
  Age: 61 Year
  Sex: Female
  Weight: 53.07 kg

DRUGS (2)
  1. BONIVA [Suspect]
     Indication: OSTEOPOROSIS
     Route: 042
     Dates: start: 20120412
  2. BONIVA [Suspect]
     Indication: OSTEOPOROSIS
     Route: 042
     Dates: start: 20120814

REACTIONS (10)
  - Myalgia [None]
  - Arthralgia [None]
  - Bone pain [None]
  - Chest pain [None]
  - Musculoskeletal chest pain [None]
  - Painful respiration [None]
  - Muscle spasms [None]
  - Musculoskeletal pain [None]
  - Pain in extremity [None]
  - Headache [None]
